FAERS Safety Report 6988818-2 (Version None)
Quarter: 2010Q3

REPORT INFORMATION
  Report Type: 
  Country: None (occurrence: None)
  Receive Date: 20100916
  Receipt Date: 20100903
  Transmission Date: 20110219
  Serious: Yes (Death, Hospitalization, Other)
  Sender: FDA-Public Use
  Company Number: US-ELI_LILLY_AND_COMPANY-US201007004418

PATIENT
  Sex: Female
  Weight: 140.59 kg

DRUGS (3)
  1. EFFIENT [Suspect]
     Indication: STENT PLACEMENT
     Dosage: 10 MG, DAILY (1/D)
     Dates: start: 20100513, end: 20100524
  2. ASPIRIN [Concomitant]
     Dosage: 325 MG, DAILY (1/D)
  3. PLAVIX [Concomitant]

REACTIONS (2)
  - CARDIO-RESPIRATORY ARREST [None]
  - UPPER GASTROINTESTINAL HAEMORRHAGE [None]
